FAERS Safety Report 14035296 (Version 2)
Quarter: 2018Q1

REPORT INFORMATION
  Report Type: Report from Study
  Country: US (occurrence: US)
  Receive Date: 20171003
  Receipt Date: 20180103
  Transmission Date: 20180508
  Serious: Yes (Other)
  Sender: FDA-Public Use
  Company Number: US-PFIZER INC-2017419111

PATIENT
  Age: 7 Year
  Sex: Male

DRUGS (3)
  1. DEFIBROTIDE [Concomitant]
     Active Substance: DEFIBROTIDE (BOVINE)
     Indication: VENOOCCLUSIVE DISEASE
     Dosage: 6.25 MG/KG, 4X/DAY (EVERY SIX HOURS EVERY SIX HOURS FOR A MINIMUM OF 21 DAYS)
  2. METHYLPREDNISOLONE SODIUM SUCCINATE. [Suspect]
     Active Substance: METHYLPREDNISOLONE SODIUM SUCCINATE
     Dosage: 2 MG/KG, 1X/DAY
     Route: 042
  3. METHYLPREDNISOLONE SODIUM SUCCINATE. [Suspect]
     Active Substance: METHYLPREDNISOLONE SODIUM SUCCINATE
     Indication: VENOOCCLUSIVE DISEASE
     Dosage: 500 MG/M2, 2X/DAY (EVERY 12 HOURS FOR THREE DAYS FOR A TOTAL OF SIX DOSES)
     Route: 042

REACTIONS (1)
  - Cytomegalovirus viraemia [Unknown]
